FAERS Safety Report 8765628 (Version 2)
Quarter: 2012Q4

REPORT INFORMATION
  Report Type: 
  Country: TR (occurrence: TR)
  Receive Date: 20120903
  Receipt Date: 20121025
  Transmission Date: 20130627
  Serious: Yes (Death, Other)
  Sender: FDA-Public Use
  Company Number: PHHY2012TR075562

PATIENT
  Age: 86 Year
  Sex: Male

DRUGS (4)
  1. GLIVEC [Suspect]
     Indication: CHRONIC MYELOID LEUKAEMIA
     Dosage: 400 mg, BID
     Route: 048
     Dates: start: 2006
  2. DESAL [Concomitant]
     Indication: CARDIAC FAILURE
     Dosage: 40 mg, UNK
     Dates: start: 201206
  3. KARVEZIDE [Concomitant]
     Indication: HYPERTENSION
     Dosage: 150/12.5 mg
     Dates: start: 201206
  4. ALDACTAZIDE [Concomitant]
     Indication: CARDIAC FAILURE
     Dosage: UNK UKN, UNK
     Dates: start: 201206

REACTIONS (9)
  - Cardiac failure [Fatal]
  - Oedema due to cardiac disease [Fatal]
  - Renal failure [Fatal]
  - Blood creatinine increased [Fatal]
  - Fluid retention [Fatal]
  - Aortic disorder [Unknown]
  - Tricuspid valve incompetence [Unknown]
  - Pulmonary hypertension [Unknown]
  - General physical health deterioration [Unknown]
